FAERS Safety Report 21059450 (Version 2)
Quarter: 2022Q3

REPORT INFORMATION
  Report Type: Spontaneous
  Country: US (occurrence: US)
  Receive Date: 20220708
  Receipt Date: 20220902
  Transmission Date: 20221027
  Serious: Yes (Other)
  Sender: FDA-Public Use
  Company Number: US-PFIZER INC-202200931404

PATIENT
  Age: 68 Year
  Sex: Female
  Weight: 117.93 kg

DRUGS (13)
  1. PAXLOVID [Suspect]
     Active Substance: NIRMATRELVIR\RITONAVIR
     Indication: COVID-19 treatment
     Dosage: UNK
     Dates: start: 20220628, end: 20220702
  2. VENTOLIN [Concomitant]
     Active Substance: ALBUTEROL SULFATE
     Dosage: UNK
     Route: 055
     Dates: start: 2010
  3. COMBIVENT [Concomitant]
     Active Substance: ALBUTEROL SULFATE\IPRATROPIUM BROMIDE
     Dosage: 100 UG/ACTIVATION, 4-6 INHALATIONS
     Route: 055
     Dates: start: 2010
  4. DUONEB [Concomitant]
     Active Substance: ALBUTEROL SULFATE\IPRATROPIUM BROMIDE
     Dosage: UNK
     Route: 055
     Dates: start: 2010
  5. LEVOTHYROXINE [Concomitant]
     Active Substance: LEVOTHYROXINE
     Indication: Thyroid disorder
     Dosage: 175 UG
     Dates: start: 2010
  6. LEVOTHYROXINE [Concomitant]
     Active Substance: LEVOTHYROXINE
     Dosage: 150 UG
  7. LEVOTHYROXINE [Concomitant]
     Active Substance: LEVOTHYROXINE
     Dosage: 175 UG
  8. LEVOTHYROXINE [Concomitant]
     Active Substance: LEVOTHYROXINE
     Dosage: EVERY MORNING ON EMPTY STOMACH
     Route: 048
     Dates: start: 2020
  9. QUINAPRIL [Concomitant]
     Active Substance: QUINAPRIL
     Indication: Blood pressure abnormal
     Dosage: AT NIGHT
  10. QUINAPRIL [Concomitant]
     Active Substance: QUINAPRIL
     Dosage: 20 MG, 1X/DAY
     Route: 048
     Dates: start: 2010
  11. MONTELUKAST [Concomitant]
     Active Substance: MONTELUKAST SODIUM
     Indication: Antiallergic therapy
     Dosage: 10 MG, 1X/DAY (EVERY NIGHT AT BEDTIME)
     Route: 048
     Dates: start: 2022
  12. CLONAZEPAM [Concomitant]
     Active Substance: CLONAZEPAM
     Indication: Sleep disorder
     Dosage: 1 MG, 1X/DAY (AS NEEDED)
     Route: 048
     Dates: start: 2010
  13. CLONAZEPAM [Concomitant]
     Active Substance: CLONAZEPAM
     Indication: Panic attack

REACTIONS (10)
  - Hypersensitivity [Not Recovered/Not Resolved]
  - Asthma [Unknown]
  - Dyspnoea [Not Recovered/Not Resolved]
  - Throat tightness [Unknown]
  - Pulmonary congestion [Unknown]
  - Cough [Not Recovered/Not Resolved]
  - Speech disorder [Unknown]
  - Panic reaction [Unknown]
  - Asthenia [Unknown]
  - Increased viscosity of bronchial secretion [Unknown]

NARRATIVE: CASE EVENT DATE: 20220701
